FAERS Safety Report 5721397-6 (Version None)
Quarter: 2008Q2

REPORT INFORMATION
  Report Type: 
  Country: None (occurrence: None)
  Receive Date: 20080429
  Receipt Date: 20080424
  Transmission Date: 20081010
  Serious: Yes (Life-Threatening)
  Sender: FDA-Public Use
  Company Number: JP-BRISTOL-MYERS SQUIBB COMPANY-14163406

PATIENT
  Age: 26 Year
  Sex: Male

DRUGS (3)
  1. LASTET [Suspect]
     Indication: TESTIS CANCER
     Route: 042
     Dates: start: 20071001
  2. BLEO [Suspect]
     Indication: TESTIS CANCER
     Route: 042
     Dates: start: 20071001
  3. RANDA [Suspect]
     Indication: TESTIS CANCER
     Route: 042
     Dates: start: 20071001

REACTIONS (1)
  - PULMONARY FIBROSIS [None]
